FAERS Safety Report 6691919-X (Version None)
Quarter: 2010Q2

REPORT INFORMATION
  Report Type: 
  Country: None (occurrence: None)
  Receive Date: 20100422
  Receipt Date: 20090608
  Transmission Date: 20101027
  Serious: No
  Sender: FDA-Public Use
  Company Number: US-ASTRAZENECA-2009UW14625

PATIENT
  Sex: Female
  Weight: 90.7 kg

DRUGS (4)
  1. TOPROL-XL [Suspect]
     Route: 048
  2. ACTONEL [Concomitant]
  3. DIOVAN [Concomitant]
  4. GLYBURIDE [Concomitant]

REACTIONS (1)
  - DYSGEUSIA [None]
